FAERS Safety Report 20495410 (Version 2)
Quarter: 2022Q2

REPORT INFORMATION
  Report Type: Spontaneous
  Country: US (occurrence: None)
  Receive Date: 20220221
  Receipt Date: 20220414
  Transmission Date: 20220721
  Serious: No
  Sender: FDA-Public Use
  Company Number: 2022A058674

PATIENT
  Sex: Female
  Weight: 68 kg

DRUGS (1)
  1. BYDUREON BCISE [Suspect]
     Active Substance: EXENATIDE
     Indication: Diabetes mellitus
     Route: 058

REACTIONS (7)
  - Appetite disorder [Unknown]
  - Intentional device misuse [Unknown]
  - Device leakage [Unknown]
  - Needle issue [Unknown]
  - Device difficult to use [Unknown]
  - Device delivery system issue [Unknown]
  - Device use error [Unknown]
